FAERS Safety Report 9891727 (Version 2)
Quarter: 2014Q1

REPORT INFORMATION
  Report Type: Spontaneous
  Country: SE (occurrence: SE)
  Receive Date: 20140212
  Receipt Date: 20140227
  Transmission Date: 20141002
  Serious: Yes (Hospitalization, Disabling, Other)
  Sender: FDA-Public Use
  Company Number: PHHY2014SE015945

PATIENT
  Age: 46 Year
  Sex: Female
  Weight: 69 kg

DRUGS (1)
  1. GILENYA [Suspect]
     Indication: MULTIPLE SCLEROSIS
     Dosage: 0.5 MG, QD
     Route: 048
     Dates: start: 20111219, end: 20131004

REACTIONS (5)
  - Posterior reversible encephalopathy syndrome [Recovered/Resolved with Sequelae]
  - Malaise [Recovering/Resolving]
  - Disorientation [Recovering/Resolving]
  - Visual impairment [Recovering/Resolving]
  - Cognitive disorder [Recovering/Resolving]
